FAERS Safety Report 17215808 (Version 3)
Quarter: 2020Q2

REPORT INFORMATION
  Report Type: Spontaneous
  Country: DE (occurrence: DE)
  Receive Date: 20191230
  Receipt Date: 20200416
  Transmission Date: 20200713
  Serious: Yes (Disabling, Other)
  Sender: FDA-Public Use
  Company Number: DE-MYLANLABS-2019M1129158

PATIENT

DRUGS (3)
  1. ESCITALOPRAM [Concomitant]
     Active Substance: ESCITALOPRAM OXALATE
     Indication: DEPRESSION
     Dosage: 10 MG, QD
     Route: 065
  2. ARIPIPRAZOLE. [Suspect]
     Active Substance: ARIPIPRAZOLE
     Indication: DEPRESSION
     Dosage: 5 MG, QD
     Route: 065
  3. ESCITALOPRAM [Concomitant]
     Active Substance: ESCITALOPRAM OXALATE
     Dosage: 15 MG, QD

REACTIONS (6)
  - Tremor [Recovered/Resolved]
  - Parkinson^s disease [Recovered/Resolved]
  - Dysphagia [Recovered/Resolved]
  - Parkinsonism [Recovered/Resolved]
  - Dysarthria [Recovered/Resolved]
  - Chills [Recovered/Resolved]
